FAERS Safety Report 10154012 (Version 1)
Quarter: 2014Q2

REPORT INFORMATION
  Report Type: Spontaneous
  Country: US (occurrence: US)
  Receive Date: 20140506
  Receipt Date: 20140506
  Transmission Date: 20141212
  Serious: No
  Sender: FDA-Public Use
  Company Number: US-009507513-1405USA001172

PATIENT
  Sex: Male

DRUGS (5)
  1. SINGULAIR [Suspect]
     Indication: VASOMOTOR RHINITIS
     Dosage: 4 MG, QD
     Route: 048
     Dates: start: 20130624, end: 201404
  2. SINGULAIR [Suspect]
     Indication: BRONCHIAL HYPERREACTIVITY
  3. PROVENTIL [Concomitant]
     Dosage: UNK
  4. PULMICORT [Concomitant]
     Dosage: UNK
  5. QVAR [Concomitant]
     Dosage: UNK

REACTIONS (4)
  - Drug ineffective [Not Recovered/Not Resolved]
  - Depression [Not Recovered/Not Resolved]
  - Abnormal behaviour [Not Recovered/Not Resolved]
  - Social avoidant behaviour [Not Recovered/Not Resolved]
